FAERS Safety Report 9482539 (Version 1)
Quarter: 2013Q3

REPORT INFORMATION
  Report Type: Spontaneous
  Country: US (occurrence: US)
  Receive Date: 20130828
  Receipt Date: 20130828
  Transmission Date: 20140515
  Serious: No
  Sender: FDA-Public Use
  Company Number: US-SANOFI-AVENTIS-2012SA029602

PATIENT
  Age: 86 Year
  Sex: Male
  Weight: 75 kg

DRUGS (9)
  1. ELIGARD [Suspect]
     Indication: PROSTATE CANCER
     Route: 065
     Dates: start: 201108, end: 201108
  2. ELIGARD [Suspect]
     Indication: PROSTATE CANCER
     Route: 065
     Dates: start: 201111, end: 201111
  3. LOVASTATIN [Concomitant]
  4. AMLODIPINE [Concomitant]
  5. GLYBURIDE [Concomitant]
  6. INDAPAMIDE [Concomitant]
  7. SUCRALFATE [Concomitant]
  8. LISINOPRIL [Concomitant]
  9. JANUVIA [Concomitant]

REACTIONS (2)
  - Gait disturbance [Unknown]
  - Myalgia [Not Recovered/Not Resolved]
